FAERS Safety Report 16286246 (Version 13)
Quarter: 2021Q3

REPORT INFORMATION
  Report Type: Spontaneous
  Country: US (occurrence: US)
  Receive Date: 20190508
  Receipt Date: 20210812
  Transmission Date: 20211014
  Serious: No
  Sender: FDA-Public Use
  Company Number: US-PFIZER INC-2019193278

PATIENT
  Age: 64 Year
  Sex: Female
  Weight: 104 kg

DRUGS (2)
  1. LYRICA [Suspect]
     Active Substance: PREGABALIN
     Indication: NEUROPATHY PERIPHERAL
     Dosage: 100 MG, TWICE A DAY
     Route: 048
     Dates: start: 201802
  2. LYRICA [Suspect]
     Active Substance: PREGABALIN
     Dosage: 100 MG, TWICE A DAY
     Dates: start: 201904

REACTIONS (2)
  - Therapeutic product effect incomplete [Not Recovered/Not Resolved]
  - Intentional product misuse [Unknown]
